FAERS Safety Report 20157261 (Version 1)
Quarter: 2021Q4

REPORT INFORMATION
  Report Type: Spontaneous
  Country: NO (occurrence: NO)
  Receive Date: 20211207
  Receipt Date: 20211207
  Transmission Date: 20220303
  Serious: Yes (Death, Hospitalization)
  Sender: FDA-Public Use
  Company Number: None

PATIENT
  Age: 80 Year
  Sex: Male

DRUGS (18)
  1. COMIRNATY [Suspect]
     Active Substance: TOZINAMERAN
     Indication: COVID-19 immunisation
     Dosage: DOSE NUMBER UNKNOWN, SINGLE
     Route: 030
     Dates: start: 20210324, end: 20210324
  2. NEURONTIN [Interacting]
     Active Substance: GABAPENTIN
     Indication: Pain
     Dosage: EVERY 8 H,DOSE TITRATED TO 300MGX3
     Route: 048
     Dates: start: 20210403
  3. TRAMADOL [Interacting]
     Active Substance: TRAMADOL
     Indication: Pain
     Dates: start: 20210328
  4. EZETIMIBE [Concomitant]
     Active Substance: EZETIMIBE
  5. BACTRIM [Concomitant]
     Active Substance: SULFAMETHOXAZOLE\TRIMETHOPRIM
     Dosage: 1 DF, 2X/DAY, FREQUENCY: 12 H
  6. CYANOCOBALAMIN [Concomitant]
     Active Substance: CYANOCOBALAMIN
  7. MOXONIDINE [Concomitant]
     Active Substance: MOXONIDINE
  8. AZITHROMYCIN ANHYDROUS [Concomitant]
     Active Substance: AZITHROMYCIN ANHYDROUS
     Dosage: 500 MG, 1X/DAY
     Route: 048
  9. PARALGIN FORTE [CODEINE PHOSPHATE;PARACETAMOL] [Concomitant]
     Dosage: AS REQUIRED
  10. DUTASTERIDE\TAMSULOSIN [Concomitant]
     Active Substance: DUTASTERIDE\TAMSULOSIN
  11. ACETAMINOPHEN [Concomitant]
     Active Substance: ACETAMINOPHEN
  12. FUROSEMIDE [Concomitant]
     Active Substance: FUROSEMIDE
  13. MIRABEGRON [Concomitant]
     Active Substance: MIRABEGRON
  14. AMLODIPINE [Concomitant]
     Active Substance: AMLODIPINE BESYLATE
  15. ALLOPURINOL [Concomitant]
     Active Substance: ALLOPURINOL
  16. PLAVIX [Concomitant]
     Active Substance: CLOPIDOGREL BISULFATE
  17. ENALAPRIL MALEATE [Concomitant]
     Active Substance: ENALAPRIL MALEATE
  18. CARVEDILOL [Concomitant]
     Active Substance: CARVEDILOL

REACTIONS (15)
  - Polyneuropathy [Fatal]
  - Pain [Fatal]
  - Muscular weakness [Fatal]
  - Spinal stenosis [Fatal]
  - Myopathy [Fatal]
  - Poisoning [Fatal]
  - Drug interaction [Fatal]
  - Renal failure [Fatal]
  - Cardiac arrest [Fatal]
  - Gait disturbance [Unknown]
  - Dyspnoea [Unknown]
  - Pallor [Unknown]
  - Confusional state [Unknown]
  - Blood pressure decreased [Unknown]
  - Oxygen saturation decreased [Unknown]

NARRATIVE: CASE EVENT DATE: 20210328
